FAERS Safety Report 5865821-7 (Version None)
Quarter: 2008Q3

REPORT INFORMATION
  Report Type: 
  Country: None (occurrence: None)
  Receive Date: 20080829
  Receipt Date: 20080817
  Transmission Date: 20090109
  Serious: Yes (Life-Threatening, Hospitalization)
  Sender: FDA-Public Use
  Company Number: US-BAUSCH-2008BL003666

PATIENT
  Age: 14 Month
  Sex: Female
  Weight: 10 kg

DRUGS (2)
  1. GENTAMICIN [Suspect]
     Indication: PYREXIA
     Route: 042
  2. CEFAZOLIN [Concomitant]
     Indication: PYREXIA

REACTIONS (3)
  - ACCIDENTAL OVERDOSE [None]
  - CONVULSION [None]
  - MEDICATION ERROR [None]
